FAERS Safety Report 17850460 (Version 1)
Quarter: 2020Q2

REPORT INFORMATION
  Report Type: Spontaneous
  Country: NO (occurrence: NO)
  Receive Date: 20200602
  Receipt Date: 20200602
  Transmission Date: 20200714
  Serious: Yes (Hospitalization)
  Sender: FDA-Public Use
  Company Number: NO-ASTRAZENECA-2020SE69585

PATIENT
  Age: 52 Year
  Sex: Female

DRUGS (7)
  1. FORXIGA [Suspect]
     Active Substance: DAPAGLIFLOZIN
     Indication: TYPE 2 DIABETES MELLITUS
     Route: 048
     Dates: start: 20171031, end: 20200512
  2. VOLTAREN [Suspect]
     Active Substance: DICLOFENAC SODIUM
     Indication: ARTHRITIS
     Route: 048
     Dates: start: 20200507, end: 20200511
  3. OZEMPIC [Concomitant]
     Active Substance: SEMAGLUTIDE
     Indication: TYPE 2 DIABETES MELLITUS
     Dosage: 1MG/UKE
     Route: 058
  4. LEVAXIN [Concomitant]
     Active Substance: LEVOTHYROXINE SODIUM
     Dosage: 1200 MG/UKE1200UG/INHAL ONCE A WEEK
     Route: 048
  5. TRESIBA [Concomitant]
     Active Substance: INSULIN DEGLUDEC
     Indication: TYPE 2 DIABETES MELLITUS
     Dosage: 40E X 1
     Route: 058
  6. ATORVASTATIN XIROMED [Concomitant]
     Indication: LIPIDS INCREASED
     Dosage: 40 MG X 1
     Route: 048
  7. GLUCOPHAGE [Suspect]
     Active Substance: METFORMIN HYDROCHLORIDE
     Indication: TYPE 2 DIABETES MELLITUS
     Dosage: 500 X 2
     Route: 048

REACTIONS (1)
  - Ketoacidosis [Recovering/Resolving]

NARRATIVE: CASE EVENT DATE: 20200512
